FAERS Safety Report 10541313 (Version 1)
Quarter: 2014Q4

REPORT INFORMATION
  Report Type: Spontaneous
  Country: FR (occurrence: FR)
  Receive Date: 20141024
  Receipt Date: 20141024
  Transmission Date: 20150529
  Serious: Yes (Hospitalization)
  Sender: FDA-Public Use
  Company Number: FR-ASTRAZENECA-2014SE79383

PATIENT
  Age: 10 Year
  Sex: Female

DRUGS (7)
  1. INEXIUM [Suspect]
     Active Substance: ESOMEPRAZOLE
     Route: 048
     Dates: start: 201006, end: 201205
  2. URSOLVAN [Concomitant]
     Active Substance: URSODIOL
     Dates: end: 2011
  3. INEXIUM [Suspect]
     Active Substance: ESOMEPRAZOLE
     Route: 048
     Dates: start: 201212
  4. PARENTERAL NUTRITION [Concomitant]
     Active Substance: AMINO ACIDS\DEXTROSE\ELECTROLYTES NOS
  5. MOPRAL [Suspect]
     Active Substance: OMEPRAZOLE SODIUM
     Route: 065
     Dates: start: 201205, end: 201212
  6. VASOBRAL [Concomitant]
     Dates: start: 200410, end: 2011
  7. RANITIDINE [Concomitant]
     Active Substance: RANITIDINE\RANITIDINE HYDROCHLORIDE
     Dates: start: 200409

REACTIONS (1)
  - Pancreatitis acute [Recovered/Resolved]
